FAERS Safety Report 14846656 (Version 1)
Quarter: 2018Q2

REPORT INFORMATION
  Report Type: Spontaneous
  Country: US (occurrence: US)
  Receive Date: 20180504
  Receipt Date: 20180504
  Transmission Date: 20180711
  Serious: No
  Sender: FDA-Public Use
  Company Number: US-PFIZER INC-2018182343

PATIENT
  Age: 36 Year
  Sex: Female

DRUGS (5)
  1. TAXOTERE [Suspect]
     Active Substance: DOCETAXEL
     Indication: BREAST CANCER
     Dosage: UNK UNK, CYCLIC (TOTAL OF 4 CYCLES EVERY 3 WEEKS)
     Dates: start: 20030805, end: 20031008
  2. DOXIL [Concomitant]
     Active Substance: DOXORUBICIN HYDROCHLORIDE
     Dosage: UNK
  3. ADRIAMYCIN [Concomitant]
     Active Substance: DOXORUBICIN HYDROCHLORIDE
     Dosage: UNK
  4. NEOSAR [Concomitant]
     Active Substance: CYCLOPHOSPHAMIDE
     Dosage: UNK
  5. DOCETAXEL. [Suspect]
     Active Substance: DOCETAXEL
     Indication: BREAST CANCER
     Dosage: UNK UNK, CYCLIC (TOTAL OF 4 CYCLEZ, EVERY 3 WEEKS)
     Dates: start: 20030805, end: 20031008

REACTIONS (5)
  - Alopecia [Unknown]
  - Hair colour changes [Unknown]
  - Hair texture abnormal [Unknown]
  - Hair disorder [Unknown]
  - Madarosis [Unknown]
